FAERS Safety Report 6086694-6 (Version None)
Quarter: 2009Q1

REPORT INFORMATION
  Report Type: 
  Country: None (occurrence: None)
  Receive Date: 20090223
  Receipt Date: 20090209
  Transmission Date: 20090719
  Serious: Yes (Hospitalization)
  Sender: FDA-Public Use
  Company Number: PT-PFIZER INC-2008159027

PATIENT

DRUGS (10)
  1. CYCLOSPORINE [Suspect]
     Indication: KIDNEY TRANSPLANT REJECTION
     Dosage: UNK
     Dates: start: 20081129
  2. MYCOPHENOLATE MOFETIL [Suspect]
     Indication: IMMUNOSUPPRESSION
     Dosage: 1 G, 2X/DAY
     Route: 048
     Dates: start: 20081129
  3. MYCOPHENOLATE MOFETIL [Suspect]
     Dosage: 500 MG, 2X/DAY
     Route: 048
  4. PREDNISOLONE [Suspect]
     Indication: IMMUNOSUPPRESSION
     Dosage: 20 MG, 1X/DAY
     Route: 048
     Dates: start: 20081202
  5. METHYLPREDNISOLONE [Concomitant]
     Dosage: 500 MG, UNK
     Route: 042
     Dates: start: 20081128, end: 20081201
  6. PREDNISONE [Concomitant]
     Dosage: 20 MG, UNK
     Route: 048
     Dates: start: 20081202
  7. BASILIXIMAB [Concomitant]
     Dosage: 20 MG, UNK
     Route: 042
  8. COTRIM [Concomitant]
     Dosage: UNK
     Dates: start: 20081129
  9. DIAZEPAM [Concomitant]
     Dates: start: 20081128, end: 20081208
  10. ESOMEPRAZOLE MAGNESIUM [Concomitant]
     Dosage: UNK
     Dates: start: 20081129

REACTIONS (4)
  - BACTERAEMIA [None]
  - CYTOMEGALOVIRUS INFECTION [None]
  - LYMPHOCELE [None]
  - URINARY TRACT INFECTION [None]
